FAERS Safety Report 10571261 (Version 2)
Quarter: 2014Q4

REPORT INFORMATION
  Report Type: Spontaneous
  Country: US (occurrence: US)
  Receive Date: 20141107
  Receipt Date: 20141226
  Transmission Date: 20150529
  Serious: Yes (Other)
  Sender: FDA-Public Use
  Company Number: US-AMGEN-USASP2014085176

PATIENT
  Age: 62 Year
  Sex: Male

DRUGS (1)
  1. EPOGEN [Suspect]
     Active Substance: ERYTHROPOIETIN
     Indication: CHRONIC KIDNEY DISEASE
     Dosage: 20000 UNIT, 3 TIMES/WK
     Route: 042
     Dates: start: 20121023

REACTIONS (2)
  - Anaemia [Not Recovered/Not Resolved]
  - Anti-erythropoietin antibody positive [Unknown]

NARRATIVE: CASE EVENT DATE: 20141124
